FAERS Safety Report 15253343 (Version 1)
Quarter: 2018Q3

REPORT INFORMATION
  Report Type: Spontaneous
  Country: IL (occurrence: IL)
  Receive Date: 20180807
  Receipt Date: 20180807
  Transmission Date: 20181010
  Serious: Yes (Other)
  Sender: FDA-Public Use
  Company Number: PHHY2018IL065517

PATIENT

DRUGS (3)
  1. CLODRONATE DISODIUM [Suspect]
     Active Substance: CLODRONATE DISODIUM
     Indication: FIBROUS DYSPLASIA OF BONE
     Dosage: UNK UNK, QD
     Route: 065
  2. ZOLEDRONATE [Suspect]
     Active Substance: ZOLEDRONIC ACID
     Indication: FIBROUS DYSPLASIA OF BONE
     Dosage: UNK UNK, BIANNUALLY
     Route: 065
  3. PAMIDRONATE [Suspect]
     Active Substance: PAMIDRONATE DISODIUM
     Indication: FIBROUS DYSPLASIA OF BONE
     Dosage: UNK UNK, BIANUALLY
     Route: 065

REACTIONS (1)
  - Osteonecrosis of jaw [Unknown]
